FAERS Safety Report 5544576-X (Version None)
Quarter: 2007Q4

REPORT INFORMATION
  Report Type: 
  Country: None (occurrence: None)
  Receive Date: 20071203
  Receipt Date: 20071115
  Transmission Date: 20080405
  Serious: Yes (Other)
  Sender: FDA-Public Use
  Company Number: AEUSA200700266

PATIENT
  Age: 66 Year
  Sex: Male

DRUGS (1)
  1. GAMUNEX [Suspect]
     Indication: PEMPHIGUS
     Dosage: 33 GM; 1X; IV
     Route: 042
     Dates: start: 20071029

REACTIONS (2)
  - HERPES SIMPLEX [None]
  - SYPHILIS TEST POSITIVE [None]
